FAERS Safety Report 9011827 (Version 1)
Quarter: 2013Q1

REPORT INFORMATION
  Report Type: Spontaneous
  Country: US (occurrence: US)
  Receive Date: 20130113
  Receipt Date: 20130113
  Transmission Date: 20140127
  Serious: Yes (Other)
  Sender: FDA-Public Use
  Company Number: US-009507513-1301USA004171

PATIENT
  Sex: Male

DRUGS (7)
  1. PREDNISONE [Suspect]
     Indication: ASTHMA
     Dosage: 50 MG, UNKNOWN
  2. PREDNISONE [Suspect]
     Indication: THROMBOSIS PROPHYLAXIS
     Dosage: 25 MG, UNKNOWN
     Route: 048
  3. TIOTROPIUM BROMIDE [Suspect]
     Dosage: 18 MCG
     Route: 055
  4. MONTELUKAST SODIUM [Suspect]
     Dosage: 10 MG, UNKNOWN
     Route: 048
  5. MOMETASONE FUROATE [Suspect]
     Dosage: 200 MCG
     Route: 045
  6. ALBUTEROL [Suspect]
     Route: 055
  7. FLUTICASONE PROPIONATE\SALMETEROL XINAFOATE [Suspect]
     Dosage: 50 MCG SALMETEROL, 500 MCG FLUTICASONE
     Route: 055

REACTIONS (3)
  - Drug resistance [Unknown]
  - Drug effect decreased [Unknown]
  - Cataract [Unknown]
